FAERS Safety Report 7048452-5 (Version None)
Quarter: 2010Q4

REPORT INFORMATION
  Report Type: 
  Country: None (occurrence: None)
  Receive Date: 20101015
  Receipt Date: 20101015
  Transmission Date: 20110411
  Serious: Yes (Other)
  Sender: FDA-Public Use
  Company Number: None

PATIENT
  Age: 53 Year
  Sex: Female
  Weight: 47.6277 kg

DRUGS (2)
  1. ALOEUP LIL' KIDS SPF 45 ALOEUP [Suspect]
     Indication: PROPHYLAXIS
     Dosage: LIGHT SPRAY USED JUST ONCE TOP
     Route: 061
     Dates: start: 20100627, end: 20100627
  2. ALOEUP LIL' KIDS SPF 45 ALOEUP [Suspect]
     Indication: SUNBURN
     Dosage: LIGHT SPRAY USED JUST ONCE TOP
     Route: 061
     Dates: start: 20100627, end: 20100627

REACTIONS (1)
  - PIGMENTATION DISORDER [None]
